FAERS Safety Report 12978005 (Version 1)
Quarter: 2016Q4

REPORT INFORMATION
  Report Type: Spontaneous
  Country: US (occurrence: US)
  Receive Date: 20161125
  Receipt Date: 20161125
  Transmission Date: 20170207
  Serious: Yes (Other)
  Sender: FDA-Public Use
  Company Number: None

PATIENT
  Age: 69 Year
  Sex: Female

DRUGS (11)
  1. NATURE-THROID [Concomitant]
     Active Substance: THYROID, PORCINE
  2. UBIQUINOL [Concomitant]
     Active Substance: UBIQUINOL
  3. VAGIFEM [Concomitant]
     Active Substance: ESTRADIOL
  4. MAGNESIUM [Concomitant]
     Active Substance: MAGNESIUM
  5. FISH OIL [Concomitant]
     Active Substance: FISH OIL
  6. TURMERIC [Concomitant]
     Active Substance: TURMERIC
  7. MULTI-VITAMIN [Concomitant]
     Active Substance: .ALPHA.-TOCOPHEROL ACETATE, DL-\ASCORBIC ACID\CYANOCOBALAMIN\FLUORIDE ION\FOLIC ACID\NIACIN\PYRIDOXINE\RIBOFLAVIN\THIAMINE\VITAMIN A\VITAMIN D
  8. VITAMIN E [Concomitant]
     Active Substance: .ALPHA.-TOCOPHEROL
  9. XIIDRA [Suspect]
     Active Substance: LIFITEGRAST
  10. VIACTIV [Concomitant]
     Active Substance: CALCIUM\VITAMIN D\VITAMIN K5
  11. SPIRONOLACTONE. [Concomitant]
     Active Substance: SPIRONOLACTONE

REACTIONS (3)
  - Dry eye [None]
  - Eye pruritus [None]
  - Ocular discomfort [None]

NARRATIVE: CASE EVENT DATE: 20161108
